FAERS Safety Report 9701928 (Version 2)
Quarter: 2014Q1

REPORT INFORMATION
  Report Type: Spontaneous
  Country: GB (occurrence: None)
  Receive Date: 20131120
  Receipt Date: 20140207
  Transmission Date: 20141002
  Serious: Yes (Death, Other)
  Sender: FDA-Public Use
  Company Number: AUR-APL-2013-09668

PATIENT
  Age: 21 Year
  Sex: Female
  Weight: 65 kg

DRUGS (4)
  1. FLUOXETINE [Suspect]
     Indication: DEPRESSION
     Route: 048
     Dates: start: 20120914, end: 20121205
  2. FLUOXETINE [Suspect]
     Indication: MIGRAINE
     Route: 048
     Dates: start: 20120914, end: 20121205
  3. IMIGRAN [Suspect]
     Indication: DEPRESSION
     Route: 048
     Dates: start: 20120914, end: 20121205
  4. IMIGRAN [Suspect]
     Indication: MIGRAINE
     Route: 048
     Dates: start: 20120914, end: 20121205

REACTIONS (4)
  - Serotonin syndrome [None]
  - Suicidal ideation [None]
  - Completed suicide [None]
  - Drug interaction [None]
